FAERS Safety Report 7210268-4 (Version None)
Quarter: 2011Q1

REPORT INFORMATION
  Report Type: 
  Country: None (occurrence: None)
  Receive Date: 20110105
  Receipt Date: 20101227
  Transmission Date: 20110831
  Serious: Yes (Other)
  Sender: FDA-Public Use
  Company Number: DE-PFIZER INC-2010179517

PATIENT
  Sex: Female

DRUGS (1)
  1. AZULFIDINE [Suspect]
     Indication: COLITIS ULCERATIVE
     Dosage: UNK
     Dates: start: 20100101

REACTIONS (2)
  - COLITIS ULCERATIVE [None]
  - INTESTINAL HAEMORRHAGE [None]
